FAERS Safety Report 25093263 (Version 3)
Quarter: 2025Q2

REPORT INFORMATION
  Report Type: Report from Study
  Country: CO (occurrence: CO)
  Receive Date: 20250319
  Receipt Date: 20250409
  Transmission Date: 20250716
  Serious: Yes (Hospitalization, Other)
  Sender: AMGEN
  Company Number: CO-AMGEN-COLSL2024236116

PATIENT
  Age: 53 Year
  Sex: Female

DRUGS (1)
  1. VECTIBIX [Suspect]
     Active Substance: PANITUMUMAB
     Indication: Colorectal cancer metastatic
     Dosage: 324 MILLIGRAM, Q2WK, BIWEEKLY
     Route: 040
     Dates: start: 20240410, end: 20241226

REACTIONS (8)
  - Biopsy liver [Not Recovered/Not Resolved]
  - Unevaluable event [Not Recovered/Not Resolved]
  - Colon operation [Recovering/Resolving]
  - Bladder neoplasm [Not Recovered/Not Resolved]
  - Hysterectomy [Recovering/Resolving]
  - Preoperative care [Not Recovered/Not Resolved]
  - Cystoscopy [Recovering/Resolving]
  - Urinary tract infection [Not Recovered/Not Resolved]

NARRATIVE: CASE EVENT DATE: 20241127
